FAERS Safety Report 8608114 (Version 2)
Quarter: 2013Q4

REPORT INFORMATION
  Report Type: Spontaneous
  Country: US (occurrence: US)
  Receive Date: 20120611
  Receipt Date: 20131011
  Transmission Date: 20140711
  Serious: Yes (Hospitalization)
  Sender: FDA-Public Use
  Company Number: US-ASTRAZENECA-2012SE35562

PATIENT
  Age: 20809 Day
  Sex: Female
  Weight: 58.1 kg

DRUGS (4)
  1. NEXIUM [Suspect]
     Indication: ABDOMINAL PAIN UPPER
     Route: 048
     Dates: start: 20100305
  2. NEURONTIN [Concomitant]
  3. NOVOLIN [Concomitant]
  4. LISINOPRIL [Concomitant]

REACTIONS (4)
  - Ankle fracture [Unknown]
  - Osteoporosis [Unknown]
  - Fall [Unknown]
  - Tibia fracture [Unknown]
